FAERS Safety Report 6268741-1 (Version None)
Quarter: 2009Q3

REPORT INFORMATION
  Report Type: 
  Country: None (occurrence: None)
  Receive Date: 20090715
  Receipt Date: 20090707
  Transmission Date: 20100115
  Serious: Yes (Other)
  Sender: FDA-Public Use
  Company Number: US-BAYER-200912034BCC

PATIENT
  Sex: Female

DRUGS (1)
  1. PHILLIPS MILK OF MAGNESIA CHERRY [Suspect]
     Indication: LAXATIVE SUPPORTIVE CARE
     Route: 048

REACTIONS (1)
  - RECTAL HAEMORRHAGE [None]
